FAERS Safety Report 4803014-2 (Version None)
Quarter: 2005Q4

REPORT INFORMATION
  Report Type: 
  Country: None (occurrence: None)
  Receive Date: 20051013
  Receipt Date: 20050927
  Transmission Date: 20060501
  Serious: Yes (Hospitalization)
  Sender: FDA-Public Use
  Company Number: FR_050907201

PATIENT
  Age: 40 Year
  Sex: Female

DRUGS (4)
  1. ZYPREXA [Suspect]
     Indication: BIPOLAR DISORDER
     Dates: start: 20050531, end: 20050603
  2. DEPAKOTE (VALPORATE SEMISODIUM) [Concomitant]
  3. CLONAZEPAM [Concomitant]
  4. CLOPIXOL (ZUCLOPENTHIXOL HYDROCHLORIDE) [Concomitant]

REACTIONS (2)
  - HEPATOCELLULAR DAMAGE [None]
  - NAUSEA [None]
